FAERS Safety Report 17893329 (Version 2)
Quarter: 2020Q2

REPORT INFORMATION
  Report Type: Report from Study
  Country: FR (occurrence: FR)
  Receive Date: 20200615
  Receipt Date: 20200615
  Transmission Date: 20200714
  Serious: Yes (Death, Hospitalization)
  Sender: FDA-Public Use
  Company Number: FR-CELLTRION INC.-2020FR023051

PATIENT

DRUGS (4)
  1. TRUXIMA [Suspect]
     Active Substance: RITUXIMAB-ABBS
     Dosage: 375 MG/M2 (TOTAL DOSE: 750 MG)
     Dates: start: 20171009, end: 20171009
  2. TRUXIMA [Suspect]
     Active Substance: RITUXIMAB-ABBS
     Dosage: 375 MG/M2 (TOTAL DOSE: 750 MG)
     Dates: start: 20171010, end: 20171010
  3. TRUXIMA [Suspect]
     Active Substance: RITUXIMAB-ABBS
     Indication: DIFFUSE LARGE B-CELL LYMPHOMA
     Dosage: 375 MG/M2 (TOTAL DOSE: 750 MG)
     Dates: start: 20170530, end: 20170530
  4. TRUXIMA [Suspect]
     Active Substance: RITUXIMAB-ABBS
     Dosage: 375 MG/M2 (TOTAL DOSE: 750 MG)
     Dates: start: 20171030, end: 20171030

REACTIONS (3)
  - Asthenia [Recovered/Resolved]
  - Chest pain [Not Recovered/Not Resolved]
  - General physical health deterioration [Fatal]

NARRATIVE: CASE EVENT DATE: 20170906
